FAERS Safety Report 21622030 (Version 1)
Quarter: 2022Q4

REPORT INFORMATION
  Report Type: Spontaneous
  Country: HR (occurrence: HR)
  Receive Date: 20221121
  Receipt Date: 20221121
  Transmission Date: 20230113
  Serious: Yes (Other)
  Sender: FDA-Public Use
  Company Number: HR-002147023-NVSC2022HR258323

PATIENT
  Age: 71 Year
  Sex: Female

DRUGS (5)
  1. KISQALI [Suspect]
     Active Substance: RIBOCICLIB
     Indication: HER2 negative breast cancer
     Dosage: UNK
     Route: 065
     Dates: start: 20220621
  2. LETROZOLE [Suspect]
     Active Substance: LETROZOLE
     Indication: HER2 negative breast cancer
     Dosage: UNK
     Route: 065
     Dates: start: 20220621
  3. KETONAL [Concomitant]
     Indication: Product used for unknown indication
     Dosage: UNK
     Route: 065
  4. ANALGIN [Concomitant]
     Indication: Product used for unknown indication
     Dosage: UNK
     Route: 065
  5. ZALDIAR [Concomitant]
     Active Substance: ACETAMINOPHEN\TRAMADOL HYDROCHLORIDE
     Indication: Product used for unknown indication
     Dosage: UNK
     Route: 065

REACTIONS (1)
  - Haematotoxicity [Unknown]

NARRATIVE: CASE EVENT DATE: 20220101
